FAERS Safety Report 6970947-0 (Version None)
Quarter: 2010Q3

REPORT INFORMATION
  Report Type: 
  Country: None (occurrence: None)
  Receive Date: 20100908
  Receipt Date: 20100831
  Transmission Date: 20110219
  Serious: Yes (Hospitalization)
  Sender: FDA-Public Use
  Company Number: FR-JNJFOC-20100900935

PATIENT
  Age: 46 Year
  Sex: Male

DRUGS (8)
  1. TAVANIC [Suspect]
     Indication: OSTEITIS
     Route: 048
  2. TARGOCID [Suspect]
     Indication: OSTEITIS
     Route: 042
  3. TARDYFERON [Suspect]
     Indication: IRON DEFICIENCY ANAEMIA
     Route: 048
  4. TRAMADOL HCL [Suspect]
     Indication: PAIN
     Route: 048
  5. ESOMEPRAZOLE MAGNESIUM [Concomitant]
     Indication: IRON DEFICIENCY ANAEMIA
     Route: 065
  6. LOVENOX [Concomitant]
     Route: 065
  7. GENTALLINE [Concomitant]
     Route: 065
  8. PIPERACILLIN AND TAZOBACTAM [Concomitant]
     Route: 065

REACTIONS (3)
  - ERYTHEMA [None]
  - PYREXIA [None]
  - TOXIC SKIN ERUPTION [None]
